FAERS Safety Report 8877553 (Version 1)
Quarter: 2012Q4

REPORT INFORMATION
  Report Type: Report from Study
  Country: FR (occurrence: FR)
  Receive Date: 20121024
  Receipt Date: 20121024
  Transmission Date: 20130627
  Serious: Yes (Other)
  Sender: FDA-Public Use
  Company Number: FR-PFIZER INC-2012260648

PATIENT
  Sex: Female

DRUGS (1)
  1. CRIZOTINIB [Suspect]
     Dosage: 500 mg, daily

REACTIONS (4)
  - Age-related macular degeneration [Unknown]
  - Visual acuity reduced [Unknown]
  - Conjunctival irritation [Unknown]
  - Dry eye [Recovering/Resolving]
